FAERS Safety Report 21726192 (Version 1)
Quarter: 2022Q4

REPORT INFORMATION
  Report Type: Spontaneous
  Country: US (occurrence: US)
  Receive Date: 20221214
  Receipt Date: 20221214
  Transmission Date: 20230113
  Serious: No
  Sender: FDA-Public Use
  Company Number: US-NOVEN PHARMACEUTICALS, INC.-2022-NOV-US001008

PATIENT
  Sex: Female

DRUGS (2)
  1. MINIVELLE [Suspect]
     Active Substance: ESTRADIOL
     Indication: Hot flush
     Dosage: 0.0375 MG, EVERY 3 DAYS
     Route: 062
     Dates: start: 2012
  2. MINIVELLE [Suspect]
     Active Substance: ESTRADIOL
     Indication: Menopause

REACTIONS (4)
  - Device difficult to use [Not Recovered/Not Resolved]
  - Device issue [Not Recovered/Not Resolved]
  - Device adhesion issue [Not Recovered/Not Resolved]
  - No adverse event [Unknown]
